FAERS Safety Report 6253983-1 (Version None)
Quarter: 2009Q3

REPORT INFORMATION
  Report Type: 
  Country: None (occurrence: None)
  Receive Date: 20090702
  Receipt Date: 20090601
  Transmission Date: 20100115
  Serious: No
  Sender: FDA-Public Use
  Company Number: US-BAYER-200922338NA

PATIENT
  Sex: Female

DRUGS (1)
  1. AVELOX [Suspect]
     Indication: DRUG USE FOR UNKNOWN INDICATION
     Dates: end: 20090531

REACTIONS (5)
  - ANXIETY [None]
  - DIZZINESS [None]
  - HYPERHIDROSIS [None]
  - SYNCOPE [None]
  - TREMOR [None]
